FAERS Safety Report 18557631 (Version 3)
Quarter: 2020Q4

REPORT INFORMATION
  Report Type: Report from Study
  Country: None (occurrence: BR)
  Receive Date: 20201130
  Receipt Date: 20201214
  Transmission Date: 20210114
  Serious: Yes (Other)
  Sender: FDA-Public Use
  Company Number: BR-ABBVIE-20K-020-3669632-00

PATIENT
  Age: 28 Year
  Sex: Female
  Weight: 55 kg

DRUGS (5)
  1. HUMIRA [Suspect]
     Active Substance: ADALIMUMAB
     Indication: PSORIASIS
     Dosage: LOADING DOSE (2 HUMIRA INJECTION)
     Route: 058
     Dates: start: 20150106, end: 20150106
  2. HUMIRA [Suspect]
     Active Substance: ADALIMUMAB
     Route: 058
     Dates: end: 2018
  3. HUMIRA [Suspect]
     Active Substance: ADALIMUMAB
     Dosage: 1 INJECTION?LOADING DOSE
     Route: 058
     Dates: start: 20150113, end: 20150113
  4. HUMIRA [Suspect]
     Active Substance: ADALIMUMAB
     Route: 058
     Dates: start: 20200113, end: 2020
  5. SERTRALINE [Concomitant]
     Active Substance: SERTRALINE HYDROCHLORIDE
     Indication: DEPRESSION
     Dosage: AFTER LUNCH

REACTIONS (3)
  - Maternal exposure during pregnancy [Unknown]
  - Candida infection [Unknown]
  - Anembryonic gestation [Recovered/Resolved]

NARRATIVE: CASE EVENT DATE: 201808
